FAERS Safety Report 8716060 (Version 4)
Quarter: 2012Q4

REPORT INFORMATION
  Report Type: 
  Country: US (occurrence: US)
  Receive Date: 20120809
  Receipt Date: 20120920
  Transmission Date: 20130627
  Serious: Yes (Other)
  Sender: FDA-Public Use
  Company Number: CHPA2012US016957

PATIENT
  Age: 64 Year
  Sex: Female

DRUGS (10)
  1. VOLTAREN GEL [Suspect]
     Indication: PAIN IN EXTREMITY
     Dosage: 4 g, BID PRN
     Route: 061
     Dates: start: 2009, end: 20120801
  2. OXYCODONE [Concomitant]
  3. SYNTHROID [Concomitant]
  4. MORPHINE [Concomitant]
  5. TOPROL XL [Concomitant]
  6. LASIX [Concomitant]
  7. FLEXERIL [Concomitant]
  8. INSULIN [Concomitant]
  9. NUVIGIL [Concomitant]
  10. MEDROL [Concomitant]

REACTIONS (9)
  - Thrombosis [Recovered/Resolved]
  - Cellulitis [Recovered/Resolved]
  - Venous recanalisation [Unknown]
  - Wound [Not Recovered/Not Resolved]
  - Activities of daily living impaired [Not Recovered/Not Resolved]
  - Pain [Recovered/Resolved]
  - Off label use [Unknown]
  - Fluid retention [Unknown]
  - Underdose [Unknown]
